FAERS Safety Report 11755513 (Version 1)
Quarter: 2015Q4

REPORT INFORMATION
  Report Type: Spontaneous
  Country: US (occurrence: None)
  Receive Date: 20151118
  Receipt Date: 20151118
  Transmission Date: 20160304
  Serious: No
  Sender: FDA-Public Use
  Company Number: None

PATIENT
  Age: 72 Year
  Sex: Female
  Weight: 63.5 kg

DRUGS (6)
  1. RECLAST [Suspect]
     Active Substance: ZOLEDRONIC ACID
     Indication: BONE SCAN
     Route: 042
  2. OMPEPRAZOLE [Concomitant]
  3. BENEFIBER [Concomitant]
     Active Substance: STARCH, WHEAT
  4. MELATONIN [Concomitant]
     Active Substance: MELATONIN
  5. BENICAR [Concomitant]
     Active Substance: OLMESARTAN MEDOXOMIL
  6. VITAMIN D (ERGO 2) [Concomitant]

REACTIONS (6)
  - Insomnia [None]
  - Crying [None]
  - Personality change [None]
  - Blood glucose increased [None]
  - Bone pain [None]
  - Arthralgia [None]

NARRATIVE: CASE EVENT DATE: 20151104
